FAERS Safety Report 13695374 (Version 1)
Quarter: 2017Q2

REPORT INFORMATION
  Report Type: Spontaneous
  Country: US (occurrence: US)
  Receive Date: 20170627
  Receipt Date: 20170627
  Transmission Date: 20170830
  Serious: No
  Sender: FDA-Public Use
  Company Number: US-ACTELION-A-US2017-150917

PATIENT
  Age: 68 Year
  Sex: Male

DRUGS (2)
  1. UPTRAVI [Suspect]
     Active Substance: SELEXIPAG
     Indication: PULMONARY ARTERIAL HYPERTENSION
     Dosage: 1000 MCG, BID
     Route: 048
     Dates: start: 20170208
  2. UPTRAVI [Suspect]
     Active Substance: SELEXIPAG
     Dosage: 400 UNK, UNK
     Route: 048

REACTIONS (2)
  - Headache [Unknown]
  - Myalgia [Unknown]
